FAERS Safety Report 9685876 (Version 1)
Quarter: 2013Q4

REPORT INFORMATION
  Report Type: Spontaneous
  Country: NL (occurrence: None)
  Receive Date: 20131108
  Receipt Date: 20131108
  Transmission Date: 20140711
  Serious: Yes (Disabling)
  Sender: FDA-Public Use
  Company Number: NL-013477

PATIENT
  Age: 5 Year
  Sex: Female

DRUGS (1)
  1. ZOMACTON (ZOMACTON) 10 MG (NOT SPECIFIED) [Suspect]
     Indication: GROWTH HORMONE DEFICIENCY
     Dates: start: 20130321, end: 20130725

REACTIONS (4)
  - Epiphysiolysis [None]
  - Arthralgia [None]
  - Gait disturbance [None]
  - Stem cell transplant [None]
